FAERS Safety Report 15967846 (Version 1)
Quarter: 2019Q1

REPORT INFORMATION
  Report Type: Spontaneous
  Country: JP (occurrence: JP)
  Receive Date: 20190215
  Receipt Date: 20190215
  Transmission Date: 20190418
  Serious: Yes (Other)
  Sender: FDA-Public Use
  Company Number: JP-PFIZER INC-2019067645

PATIENT
  Age: 8 Decade
  Sex: Male

DRUGS (1)
  1. CAMPTO [Suspect]
     Active Substance: IRINOTECAN
     Dosage: UNK, CYCLIC (ONCE A DAY)
     Route: 041

REACTIONS (2)
  - Pneumonia [Unknown]
  - Haemoptysis [Unknown]
